FAERS Safety Report 14797699 (Version 1)
Quarter: 2018Q2

REPORT INFORMATION
  Report Type: Spontaneous
  Country: IL (occurrence: IL)
  Receive Date: 20180424
  Receipt Date: 20180424
  Transmission Date: 20180711
  Serious: Yes (Other)
  Sender: FDA-Public Use
  Company Number: IL-009507513-1804ISR007578

PATIENT
  Age: 35 Year
  Sex: Female

DRUGS (1)
  1. TEMODAL [Suspect]
     Active Substance: TEMOZOLOMIDE
     Indication: ANAPLASTIC ASTROCYTOMA
     Dosage: UNK

REACTIONS (3)
  - Malignant neoplasm progression [Unknown]
  - Tumour excision [Unknown]
  - Anaplastic astrocytoma [Unknown]

NARRATIVE: CASE EVENT DATE: 201706
